FAERS Safety Report 21024470 (Version 1)
Quarter: 2022Q2

REPORT INFORMATION
  Report Type: Spontaneous
  Country: JP (occurrence: JP)
  Receive Date: 20220629
  Receipt Date: 20220629
  Transmission Date: 20220720
  Serious: Yes (Other)
  Sender: FDA-Public Use
  Company Number: JP-SA-2022SA224228

PATIENT
  Age: 6 Month
  Sex: Female

DRUGS (4)
  1. SABRIL [Suspect]
     Active Substance: VIGABATRIN
     Indication: Infantile spasms
     Dosage: UNK
     Route: 048
     Dates: start: 20220506, end: 20220520
  2. SABRIL [Suspect]
     Active Substance: VIGABATRIN
     Dosage: GRADUAL DECREASE
     Route: 048
     Dates: start: 20220521, end: 20220526
  3. VALPROATE SODIUM [Concomitant]
     Active Substance: VALPROATE SODIUM
     Indication: Product used for unknown indication
     Dosage: 100 MG/DAY
     Route: 065
     Dates: start: 20220519
  4. CORTROSYN Z [TETRACOSACTIDE ACETATE] [Concomitant]
     Indication: Product used for unknown indication
     Dosage: 0.16 MG/DAY
     Route: 065
     Dates: start: 20220521, end: 20220613

REACTIONS (2)
  - Magnetic resonance imaging head abnormal [Recovering/Resolving]
  - Drug ineffective [Recovering/Resolving]

NARRATIVE: CASE EVENT DATE: 20220501
